FAERS Safety Report 11953233 (Version 7)
Quarter: 2017Q3

REPORT INFORMATION
  Report Type: Spontaneous
  Country: DK (occurrence: DK)
  Receive Date: 20160126
  Receipt Date: 20170731
  Transmission Date: 20171127
  Serious: Yes (Life-Threatening, Hospitalization, Disabling)
  Sender: FDA-Public Use
  Company Number: DK-PFIZER INC-2016034515

PATIENT
  Age: 41 Year
  Sex: Female

DRUGS (3)
  1. CYTOTEC [Suspect]
     Active Substance: MISOPROSTOL
     Dosage: 0.8 MG, UNK (IN THE SIXTH WEEK)
     Route: 067
  2. CYTOTEC [Suspect]
     Active Substance: MISOPROSTOL
     Indication: ABORTION
     Dosage: 0.6 MG, SINGLE (DOSE: 3 TABLETS. STRENGTH: 0.2 MG.)
     Route: 048
     Dates: start: 20160112
  3. MIFEPRISTONE [Concomitant]
     Active Substance: MIFEPRISTONE
     Indication: ABORTION
     Dosage: 200 MG, UNK (IN THE SIXTH WEEK)
     Route: 048

REACTIONS (11)
  - Ejection fraction decreased [Recovered/Resolved]
  - Cardiac arrest [Recovered/Resolved with Sequelae]
  - Arteriospasm coronary [Not Recovered/Not Resolved]
  - Ventricular hypokinesia [Recovered/Resolved]
  - Torsade de pointes [Recovered/Resolved]
  - Loss of consciousness [Recovered/Resolved]
  - Ventricular tachycardia [Recovered/Resolved]
  - Product use in unapproved indication [Recovered/Resolved]
  - Chest pain [Recovered/Resolved with Sequelae]
  - Bundle branch block right [Recovered/Resolved]
  - Pain in extremity [Unknown]

NARRATIVE: CASE EVENT DATE: 20160112
